FAERS Safety Report 6066707-8 (Version None)
Quarter: 2009Q1

REPORT INFORMATION
  Report Type: 
  Country: None (occurrence: None)
  Receive Date: 20090205
  Receipt Date: 20080512
  Transmission Date: 20090719
  Serious: No
  Sender: FDA-Public Use
  Company Number: US-ABBOTT-08P-163-0451478-00

PATIENT
  Sex: Male
  Weight: 70.37 kg

DRUGS (9)
  1. VICODIN [Suspect]
     Indication: SCIATICA
     Dosage: 10MG/325MG EVERY 1-4 HOURS AS NEEDED
     Route: 048
     Dates: start: 20000101
  2. VICODIN [Suspect]
     Indication: BACK PAIN
  3. ERGOCALCIFEROL [Concomitant]
     Indication: VITAMIN SUPPLEMENTATION
     Route: 048
  4. ATORVASTATIN CALCIUM [Concomitant]
     Indication: LIPIDS
     Route: 048
  5. ACETYLSALICYLIC ACID SRT [Concomitant]
     Indication: PROPHYLAXIS
     Route: 048
  6. NICOTINIC ACID [Concomitant]
     Indication: LIPIDS
     Route: 048
  7. FOLIC ACID [Concomitant]
     Indication: VITAMIN SUPPLEMENTATION
     Route: 048
  8. CALCIUM [Concomitant]
     Indication: MINERAL SUPPLEMENTATION
     Route: 048
  9. ACETAMINOPHEN [Concomitant]
     Indication: PAIN
     Route: 048

REACTIONS (2)
  - ADRENAL INSUFFICIENCY [None]
  - FATIGUE [None]
